FAERS Safety Report 7397606-7 (Version None)
Quarter: 2011Q2

REPORT INFORMATION
  Report Type: 
  Country: None (occurrence: None)
  Receive Date: 20110406
  Receipt Date: 20110323
  Transmission Date: 20111010
  Serious: Yes (Life-Threatening, Hospitalization)
  Sender: FDA-Public Use
  Company Number: SE-JNJFOC-20110310134

PATIENT
  Sex: Male
  Weight: 74 kg

DRUGS (2)
  1. NICORETTE FRESHFRUIT [Suspect]
     Indication: NICOTINE DEPENDENCE
     Dosage: 12X4MG
     Route: 048
  2. NMG [Suspect]
     Indication: NICOTINE DEPENDENCE
     Dosage: 8X6MG
     Route: 048

REACTIONS (2)
  - ALCOHOL USE [None]
  - DEPRESSION [None]
